FAERS Safety Report 17634929 (Version 2)
Quarter: 2020Q2

REPORT INFORMATION
  Report Type: Report from Study
  Country: None (occurrence: US)
  Receive Date: 20200407
  Receipt Date: 20200515
  Transmission Date: 20200713
  Serious: Yes (Other)
  Sender: FDA-Public Use
  Company Number: US-ABBVIE-20K-163-3352084-00

PATIENT
  Sex: Female

DRUGS (2)
  1. HUMIRA [Suspect]
     Active Substance: ADALIMUMAB
     Indication: RHEUMATOID ARTHRITIS
     Route: 058
     Dates: start: 20200316
  2. STEROIDS [Concomitant]
     Active Substance: UNSPECIFIED INGREDIENT
     Indication: PRODUCT USED FOR UNKNOWN INDICATION

REACTIONS (11)
  - Joint stiffness [Recovering/Resolving]
  - Arthralgia [Recovering/Resolving]
  - Pain [Unknown]
  - Depression [Unknown]
  - Pain [Recovering/Resolving]
  - Gait disturbance [Unknown]
  - Joint swelling [Recovering/Resolving]
  - Meniscus injury [Unknown]
  - Discomfort [Unknown]
  - Loss of personal independence in daily activities [Unknown]
  - Anxiety [Unknown]

NARRATIVE: CASE EVENT DATE: 2020
